FAERS Safety Report 4444482-8 (Version None)
Quarter: 2004Q3

REPORT INFORMATION
  Report Type: 
  Country: None (occurrence: None)
  Receive Date: 20040902
  Receipt Date: 20040820
  Transmission Date: 20050211
  Serious: Yes (Hospitalization)
  Sender: FDA-Public Use
  Company Number: TEST00204002858

PATIENT
  Age: 13 Year
  Sex: Male
  Weight: 75.8 kg

DRUGS (1)
  1. ANDROGEL [Suspect]
     Indication: HYPOGONADISM
     Dosage: 1.5 G QD TD
     Route: 062
     Dates: start: 20040226, end: 20040819

REACTIONS (8)
  - ANOREXIA [None]
  - APPENDICITIS PERFORATED [None]
  - FEBRILE CONVULSION [None]
  - HEART RATE INCREASED [None]
  - MENTAL STATUS CHANGES [None]
  - PURULENCE [None]
  - TACHYCARDIA [None]
  - URINE OUTPUT DECREASED [None]
